FAERS Safety Report 13558103 (Version 1)
Quarter: 2017Q2

REPORT INFORMATION
  Report Type: Spontaneous
  Country: JP (occurrence: JP)
  Receive Date: 20170517
  Receipt Date: 20170517
  Transmission Date: 20170830
  Serious: Yes (Life-Threatening, Other)
  Sender: FDA-Public Use
  Company Number: JP-BAUSCH-BL-2017-014948

PATIENT
  Age: 51 Year
  Sex: Female

DRUGS (2)
  1. MESALAZINE [Suspect]
     Active Substance: MESALAMINE
     Indication: DIARRHOEA
     Route: 065
     Dates: start: 201510, end: 2016
  2. MESALAZINE [Suspect]
     Active Substance: MESALAMINE
     Route: 065
     Dates: start: 2016, end: 2016

REACTIONS (2)
  - Hypersensitivity [Recovered/Resolved]
  - Drug ineffective [Unknown]

NARRATIVE: CASE EVENT DATE: 2016
